FAERS Safety Report 8543540-6 (Version None)
Quarter: 2012Q3

REPORT INFORMATION
  Report Type: 
  Country: None (occurrence: None)
  Receive Date: 20120727
  Receipt Date: 20120720
  Transmission Date: 20120928
  Serious: Yes (Other)
  Sender: FDA-Public Use
  Company Number: US-NAPPMUNDI-USA-2012-0090336

PATIENT
  Age: 25 Year
  Sex: Female

DRUGS (1)
  1. OXYCONTIN [Suspect]
     Indication: DRUG ABUSE

REACTIONS (3)
  - SUICIDAL IDEATION [None]
  - DRUG ABUSE [None]
  - MATERNAL EXPOSURE DURING PREGNANCY [None]
